FAERS Safety Report 10881649 (Version 2)
Quarter: 2015Q2

REPORT INFORMATION
  Report Type: Spontaneous
  Country: CZ (occurrence: CZ)
  Receive Date: 20150303
  Receipt Date: 20150417
  Transmission Date: 20150821
  Serious: Yes (Death, Life-Threatening, Hospitalization, Other)
  Sender: FDA-Public Use
  Company Number: CZ-CELGENE-CZE-2015011108

PATIENT
  Age: 50 Year
  Sex: Male
  Weight: 84 kg

DRUGS (29)
  1. DEXAMETHASONE. [Suspect]
     Active Substance: DEXAMETHASONE
     Indication: PLASMA CELL MYELOMA
     Route: 048
     Dates: start: 20130618
  2. DINATRII CLODRONAS [Concomitant]
     Indication: PROPHYLAXIS
     Route: 048
     Dates: start: 20101210
  3. ZOLPIDEMI TARTRAS [Concomitant]
     Indication: INSOMNIA
     Dosage: 1600 MILLIGRAM
     Route: 048
     Dates: start: 20130618
  4. GRANISETRONUM [Concomitant]
     Indication: PROPHYLAXIS
     Route: 048
     Dates: start: 20130902
  5. FENTANYLUM [Concomitant]
     Dosage: MCG/H
     Route: 062
     Dates: start: 20140916
  6. NADROPARINUM CALCIUM [Concomitant]
     Indication: THROMBOCYTOPENIA
     Route: 058
     Dates: start: 20141124, end: 20150108
  7. NADROPARINUM CALCIUM [Concomitant]
     Route: 058
     Dates: start: 20150107, end: 20150107
  8. CLODRONATE DISODIUM [Concomitant]
     Active Substance: CLODRONATE DISODIUM
     Route: 048
     Dates: start: 20150108
  9. BLINDED MLN9708 [Suspect]
     Active Substance: IXAZOMIB
     Indication: PLASMA CELL MYELOMA
     Route: 048
     Dates: start: 20130618
  10. BLINDED MLN9708 [Suspect]
     Active Substance: IXAZOMIB
     Route: 048
     Dates: end: 20141216
  11. DEXAMETHASONE. [Suspect]
     Active Substance: DEXAMETHASONE
     Route: 048
     Dates: end: 20141216
  12. NIMESULIDUM [Concomitant]
     Indication: BACK PAIN
     Route: 048
     Dates: start: 2010
  13. OMEPRAZOLUM [Concomitant]
     Route: 048
     Dates: start: 20150107, end: 20150107
  14. PARACETAMOLUM [Concomitant]
     Indication: BACK PAIN
     Route: 048
     Dates: start: 20131016
  15. NADROPARINUM CALCIUM [Concomitant]
     Route: 058
     Dates: start: 20150108, end: 20150108
  16. REVLIMID [Suspect]
     Active Substance: LENALIDOMIDE
     Route: 048
     Dates: end: 20141216
  17. ACICLOVIRUM [Concomitant]
     Route: 048
     Dates: start: 20150108
  18. NADROPARINUM CALCIUM [Concomitant]
     Route: 058
     Dates: start: 20150107, end: 20150107
  19. CLODRONATE DISODIUM [Concomitant]
     Active Substance: CLODRONATE DISODIUM
     Indication: PRODUCT USED FOR UNKNOWN INDICATION
     Route: 065
     Dates: start: 20101210
  20. FENTANYL. [Concomitant]
     Active Substance: FENTANYL
     Indication: PRODUCT USED FOR UNKNOWN INDICATION
     Route: 065
     Dates: start: 20140304
  21. ACICLOVIRUM [Concomitant]
     Indication: PROPHYLAXIS
     Route: 048
     Dates: start: 20130618
  22. OMEPRAZOLUM [Concomitant]
     Indication: PROPHYLAXIS
     Route: 048
     Dates: start: 20130903
  23. COTRIMOXAZOL [Concomitant]
     Active Substance: SULFAMETHOXAZOLE\TRIMETHOPRIM
     Indication: INFECTION PROPHYLAXIS
     Dosage: 80/400 MG
     Route: 048
     Dates: start: 20130618
  24. FILGRASTIMUM [Concomitant]
     Route: 058
     Dates: start: 20150106, end: 20150106
  25. REVLIMID [Suspect]
     Active Substance: LENALIDOMIDE
     Indication: PLASMA CELL MYELOMA
     Route: 048
     Dates: start: 20130618
  26. OMEPRAZOLUM [Concomitant]
     Route: 048
     Dates: start: 20150108
  27. FENTANYLUM [Concomitant]
     Indication: BACK PAIN
     Route: 060
     Dates: start: 20140304
  28. FILGRASTIMUM [Concomitant]
     Indication: PROPHYLAXIS
     Route: 058
     Dates: start: 20140916
  29. BROMAZEPAMUM [Concomitant]
     Indication: PROPHYLAXIS
     Route: 048
     Dates: start: 20141024

REACTIONS (2)
  - Pulmonary embolism [Fatal]
  - Plasma cell myeloma [Fatal]

NARRATIVE: CASE EVENT DATE: 20150106
